FAERS Safety Report 25756184 (Version 1)
Quarter: 2025Q3

REPORT INFORMATION
  Report Type: Spontaneous
  Country: US (occurrence: None)
  Receive Date: 20250903
  Receipt Date: 20250903
  Transmission Date: 20251021
  Serious: Yes (Hospitalization)
  Sender: FDA-CTU
  Company Number: None

PATIENT
  Age: 57 Year
  Sex: Female
  Weight: 74.8 kg

DRUGS (1)
  1. PEMBROLIZUMAB [Suspect]
     Active Substance: PEMBROLIZUMAB
     Dates: end: 20250619

REACTIONS (9)
  - Chromaturia [None]
  - Autoimmune haemolytic anaemia [None]
  - Aspartate aminotransferase increased [None]
  - Alanine aminotransferase increased [None]
  - Blood lactate dehydrogenase increased [None]
  - White blood cell count decreased [None]
  - Platelet count decreased [None]
  - Immature granulocyte count increased [None]
  - Reticulocyte count increased [None]

NARRATIVE: CASE EVENT DATE: 20250902
